FAERS Safety Report 6260770-7 (Version None)
Quarter: 2009Q3

REPORT INFORMATION
  Report Type: 
  Country: None (occurrence: None)
  Receive Date: 20090706
  Receipt Date: 20090625
  Transmission Date: 20100115
  Serious: Yes (Other)
  Sender: FDA-Public Use
  Company Number: 2009S1000034

PATIENT
  Age: 3 Year
  Sex: Female

DRUGS (1)
  1. INOMAX [Suspect]
     Indication: PULMONARY HYPERTENSION
     Dosage: 20 PPM; CONT; INH
     Route: 055
     Dates: start: 20090609, end: 20090612

REACTIONS (3)
  - DEVICE FAILURE [None]
  - DEVICE MALFUNCTION [None]
  - OXYGEN SATURATION DECREASED [None]
